FAERS Safety Report 5760635-0 (Version None)
Quarter: 2008Q2

REPORT INFORMATION
  Report Type: 
  Country: None (occurrence: None)
  Receive Date: 20080602
  Receipt Date: 20080522
  Transmission Date: 20081010
  Serious: Yes (Other)
  Sender: FDA-Public Use
  Company Number: 2008SP010003

PATIENT
  Sex: Male

DRUGS (1)
  1. A AND D ZINC OXIDE CREAM [Suspect]
     Indication: DERMATITIS DIAPER
     Dosage: TOP
     Route: 061

REACTIONS (4)
  - ASTHENIA [None]
  - DYSPNOEA [None]
  - GAIT DISTURBANCE [None]
  - PAIN [None]
